FAERS Safety Report 6005038-9 (Version None)
Quarter: 2008Q4

REPORT INFORMATION
  Report Type: 
  Country: None (occurrence: None)
  Receive Date: 20081216
  Receipt Date: 20081118
  Transmission Date: 20090506
  Serious: No
  Sender: FDA-Public Use
  Company Number: US-BAUSCH-2008BL004844

PATIENT
  Sex: Female

DRUGS (1)
  1. NEOMYCIN AND POLYMXIN B SULFATES AND HYDROCORTISONE [Suspect]
     Route: 047
     Dates: start: 20081018, end: 20081018

REACTIONS (4)
  - EYE IRRITATION [None]
  - MEDICATION ERROR [None]
  - PHOTOPHOBIA [None]
  - VISION BLURRED [None]
